FAERS Safety Report 26162990 (Version 1)
Quarter: 2025Q4

REPORT INFORMATION
  Report Type: Spontaneous
  Country: US (occurrence: None)
  Receive Date: 20251215
  Receipt Date: 20251215
  Transmission Date: 20260118
  Serious: No
  Sender: FDA-CTU
  Company Number: None

PATIENT
  Age: 16 Year
  Sex: Female

DRUGS (1)
  1. ADBRY [Suspect]
     Active Substance: TRALOKINUMAB-LDRM
     Indication: Eczema
     Dosage: OTHER FREQUENCY : Q14 DAYS ;
     Route: 058
     Dates: start: 20251106

REACTIONS (3)
  - Drug ineffective [None]
  - Eczema [None]
  - Sleep disorder [None]
